FAERS Safety Report 15336518 (Version 2)
Quarter: 2018Q3

REPORT INFORMATION
  Report Type: Report from Study
  Country: US (occurrence: US)
  Receive Date: 20180830
  Receipt Date: 20180924
  Transmission Date: 20181010
  Serious: Yes (Other)
  Sender: FDA-Public Use
  Company Number: US-BIOGEN-2018BI00609133

PATIENT
  Age: 50 Year
  Sex: Female

DRUGS (1)
  1. AVONEX [Suspect]
     Active Substance: INTERFERON BETA-1A
     Indication: MULTIPLE SCLEROSIS
     Route: 030
     Dates: start: 20180217

REACTIONS (3)
  - Brain neoplasm malignant [Unknown]
  - Skin ulcer [Not Recovered/Not Resolved]
  - Mandibular mass [Not Recovered/Not Resolved]

NARRATIVE: CASE EVENT DATE: 201806
